FAERS Safety Report 21663436 (Version 1)
Quarter: 2022Q4

REPORT INFORMATION
  Report Type: Spontaneous
  Country: US (occurrence: US)
  Receive Date: 20221130
  Receipt Date: 20221130
  Transmission Date: 20230113
  Serious: Yes (Other)
  Sender: FDA-Public Use
  Company Number: US-BRISTOL-MYERS SQUIBB COMPANY-2022-144833

PATIENT
  Age: 59 Year
  Sex: Male

DRUGS (1)
  1. REVLIMID [Suspect]
     Active Substance: LENALIDOMIDE
     Indication: Plasma cell myeloma
     Route: 048

REACTIONS (4)
  - Neuropathy peripheral [Unknown]
  - Respiratory syncytial virus test positive [Recovering/Resolving]
  - Dysuria [Recovering/Resolving]
  - Urine flow decreased [Recovering/Resolving]

NARRATIVE: CASE EVENT DATE: 20221101
